FAERS Safety Report 5703693-1 (Version None)
Quarter: 2008Q2

REPORT INFORMATION
  Report Type: 
  Country: None (occurrence: None)
  Receive Date: 20080413
  Receipt Date: 20080403
  Transmission Date: 20081010
  Serious: Yes (Disabling, Other)
  Sender: FDA-Public Use
  Company Number: PHRM2008FR01162

PATIENT
  Age: 77 Year
  Sex: Male

DRUGS (9)
  1. COTAREG [Suspect]
     Indication: AORTIC VALVE DISEASE
     Route: 048
     Dates: start: 20070101
  2. CELESTONE [Suspect]
     Indication: BRONCHITIS
     Dosage: 6 MG, QD
     Route: 048
     Dates: start: 20071221, end: 20071228
  3. ROXITHROMYCINE [Suspect]
     Indication: BRONCHITIS
     Dosage: 300 MG, QD
     Route: 048
     Dates: start: 20071221, end: 20071228
  4. TOPLEXIL [Suspect]
     Indication: BRONCHITIS
     Route: 048
     Dates: start: 20071221, end: 20071228
  5. CRESTOR [Suspect]
     Indication: ANGINA PECTORIS
     Dates: start: 20070910
  6. DISCOTRINE [Suspect]
     Indication: ANGINA PECTORIS
     Dosage: 10 MG, QD
     Route: 062
  7. AMLOR [Suspect]
     Indication: ANGINA PECTORIS
     Dosage: 5 MG, QD
     Route: 048
  8. XATRAL [Suspect]
     Indication: DYSURIA
     Dosage: 10 MG, QD
  9. KARDEGIC [Suspect]
     Indication: ANGINA PECTORIS
     Dosage: 1 DF, QD
     Route: 048

REACTIONS (2)
  - BRONCHITIS [None]
  - TENDON RUPTURE [None]
